FAERS Safety Report 11643040 (Version 1)
Quarter: 2015Q4

REPORT INFORMATION
  Report Type: Spontaneous
  Country: US (occurrence: US)
  Receive Date: 20151020
  Receipt Date: 20151020
  Transmission Date: 20160304
  Serious: No
  Sender: FDA-Public Use
  Company Number: US-TEVA-573584USA

PATIENT
  Sex: Male

DRUGS (1)
  1. HYDROXYCARBAMIDE [Suspect]
     Active Substance: HYDROXYUREA
     Route: 065
     Dates: end: 20150614

REACTIONS (1)
  - Rash [Unknown]
